FAERS Safety Report 21675369 (Version 1)
Quarter: 2022Q4

REPORT INFORMATION
  Report Type: Spontaneous
  Country: US (occurrence: US)
  Receive Date: 20221202
  Receipt Date: 20221202
  Transmission Date: 20230113
  Serious: Yes (Other)
  Sender: FDA-Public Use
  Company Number: US-BAYER-2022A155526

PATIENT
  Age: 75 Year
  Sex: Male
  Weight: 79 kg

DRUGS (1)
  1. BETASERON [Suspect]
     Active Substance: INTERFERON BETA-1B
     Indication: Multiple sclerosis
     Dosage: UNK

REACTIONS (3)
  - Multiple sclerosis [None]
  - Liver disorder [None]
  - Drug ineffective [None]
